FAERS Safety Report 16121398 (Version 1)
Quarter: 2019Q1

REPORT INFORMATION
  Report Type: Spontaneous
  Country: IT (occurrence: IT)
  Receive Date: 20190327
  Receipt Date: 20190327
  Transmission Date: 20190418
  Serious: Yes (Other)
  Sender: FDA-Public Use
  Company Number: IT-BEH-2019100605

PATIENT
  Age: 81 Year
  Sex: Male

DRUGS (1)
  1. PRIVIGEN [Suspect]
     Active Substance: HUMAN IMMUNOGLOBULIN G
     Indication: HYPOGAMMAGLOBULINAEMIA
     Dosage: 100 MG, TOT
     Route: 042
     Dates: start: 20190214, end: 20190214

REACTIONS (5)
  - Pyrexia [Recovered/Resolved]
  - Hypertension [Recovered/Resolved]
  - Respiratory failure [Recovered/Resolved]
  - Bronchostenosis [Recovered/Resolved]
  - Chills [Recovered/Resolved]

NARRATIVE: CASE EVENT DATE: 20190214
